FAERS Safety Report 6401889-7 (Version None)
Quarter: 2009Q4

REPORT INFORMATION
  Report Type: 
  Country: None (occurrence: None)
  Receive Date: 20091015
  Receipt Date: 20091006
  Transmission Date: 20100525
  Serious: Yes (Hospitalization)
  Sender: FDA-Public Use
  Company Number: CH-ASTRAZENECA-2009SE18469

PATIENT
  Age: 45 Year
  Sex: Female

DRUGS (4)
  1. SEROQUEL [Suspect]
     Route: 048
     Dates: start: 20090602, end: 20090602
  2. SEROQUEL [Suspect]
     Route: 048
     Dates: start: 20090603, end: 20090603
  3. REMERON [Suspect]
     Route: 048
  4. CITALOPRAM HYDROBROMIDE [Suspect]
     Route: 048

REACTIONS (2)
  - DIZZINESS [None]
  - HYPOTONIA [None]
